FAERS Safety Report 18158778 (Version 3)
Quarter: 2020Q4

REPORT INFORMATION
  Report Type: Report from Study
  Country: None (occurrence: SK)
  Receive Date: 20200818
  Receipt Date: 20201209
  Transmission Date: 20210113
  Serious: Yes (Other)
  Sender: FDA-Public Use
  Company Number: SK-ABBVIE-20K-260-3528186-00

PATIENT
  Sex: Male

DRUGS (1)
  1. IBRUTINIB [Suspect]
     Active Substance: IBRUTINIB
     Indication: CHRONIC LYMPHOCYTIC LEUKAEMIA
     Route: 048
     Dates: start: 20170711

REACTIONS (2)
  - Hyperhidrosis [Recovered/Resolved]
  - Nodule [Not Recovered/Not Resolved]

NARRATIVE: CASE EVENT DATE: 20200720
